FAERS Safety Report 13584414 (Version 1)
Quarter: 2017Q2

REPORT INFORMATION
  Report Type: Spontaneous
  Country: US (occurrence: US)
  Receive Date: 20170526
  Receipt Date: 20170526
  Transmission Date: 20170830
  Serious: No
  Sender: FDA-Public Use
  Company Number: US-TEVA-667030USA

PATIENT
  Sex: Female
  Weight: 58.11 kg

DRUGS (2)
  1. SIMVASTATIN. [Suspect]
     Active Substance: SIMVASTATIN
     Indication: BLOOD CHOLESTEROL INCREASED
     Dosage: 20 MILLIGRAM DAILY;
     Route: 065
     Dates: start: 201602, end: 201605
  2. ATORVASTATIN [Concomitant]
     Active Substance: ATORVASTATIN

REACTIONS (8)
  - Blood cholesterol increased [Recovered/Resolved]
  - Product substitution issue [Unknown]
  - Cyst [Unknown]
  - Drug ineffective [Unknown]
  - Weight increased [Recovered/Resolved]
  - Depression [Recovered/Resolved]
  - Feeling abnormal [Recovered/Resolved]
  - Prescription drug used without a prescription [Unknown]
